FAERS Safety Report 9764058 (Version 1)
Quarter: 2013Q4

REPORT INFORMATION
  Report Type: Spontaneous
  Country: US (occurrence: US)
  Receive Date: 20131216
  Receipt Date: 20131216
  Transmission Date: 20140711
  Serious: No
  Sender: FDA-Public Use
  Company Number: US-BIOGENIDEC-2013BI110262

PATIENT
  Sex: Female

DRUGS (12)
  1. TECFIDERA [Suspect]
     Indication: MULTIPLE SCLEROSIS
     Route: 048
     Dates: start: 201309
  2. PREDNISONE [Concomitant]
  3. AUGMENTIN [Concomitant]
  4. AMBIEN [Concomitant]
  5. LIPITOR [Concomitant]
  6. CLONAZEPAM [Concomitant]
  7. GABAPENTIN [Concomitant]
  8. DIAZEPAM [Concomitant]
  9. IMODIUM [Concomitant]
  10. LEXAPRO [Concomitant]
  11. PROVIGIL [Concomitant]
  12. OMEPRAZOLE [Concomitant]

REACTIONS (1)
  - Eczema [Unknown]
